FAERS Safety Report 8214309-7 (Version None)
Quarter: 2012Q1

REPORT INFORMATION
  Report Type: 
  Country: None (occurrence: None)
  Receive Date: 20120316
  Receipt Date: 20120314
  Transmission Date: 20120608
  Serious: Yes (Death, Life-Threatening, Hospitalization)
  Sender: FDA-Public Use
  Company Number: NL-GENZYME-CLOF-1001858

PATIENT
  Sex: Male
  Weight: 99 kg

DRUGS (10)
  1. FUROSEMIDE [Concomitant]
     Indication: DIURETIC THERAPY
     Dosage: 40 MG, UNK
     Route: 042
     Dates: start: 20110924, end: 20110929
  2. IMIPENEM [Concomitant]
     Indication: HYPERTENSION
     Dosage: 1 MG, UNK
     Route: 042
     Dates: start: 20111001, end: 20111011
  3. CILASTATIN [Concomitant]
     Indication: HYPERTENSION
     Dosage: 1 MG, UNK
     Route: 042
     Dates: start: 20111001, end: 20111011
  4. IDARUBICIN HCL [Suspect]
     Indication: ACUTE MYELOID LEUKAEMIA
     Dosage: 26 MG, UNK
     Route: 042
     Dates: start: 20110921, end: 20110923
  5. TRAMADOL HCL [Concomitant]
     Indication: PAIN
     Dosage: 50 MG, UNK
     Route: 048
     Dates: start: 20110925, end: 20110929
  6. CALCIUM CHLORIDE [Concomitant]
     Indication: CALCIUM DEFICIENCY
     Dosage: 1 G, UNK
     Route: 042
     Dates: start: 20110926, end: 20110929
  7. EVOLTRA [Suspect]
     Indication: ACUTE MYELOID LEUKAEMIA
     Dosage: 22 MG, UNK
     Route: 042
     Dates: start: 20110921, end: 20110925
  8. LORAZEPAM [Concomitant]
     Indication: INSOMNIA
     Dosage: 1 MG, UNK
     Route: 042
     Dates: start: 20110929, end: 20111011
  9. CYTARABINE [Suspect]
     Indication: ACUTE MYELOID LEUKAEMIA
     Dosage: 440 MG, UNK
     Route: 042
     Dates: start: 20110921, end: 20110927
  10. VANCOMYCIN [Concomitant]
     Indication: ANTIBIOTIC THERAPY
     Dosage: 1000 MG, UNK
     Route: 042
     Dates: start: 20110925, end: 20110929

REACTIONS (3)
  - SEPSIS [None]
  - MULTI-ORGAN FAILURE [None]
  - TOXICITY TO VARIOUS AGENTS [None]
